FAERS Safety Report 7879332-0 (Version None)
Quarter: 2011Q4

REPORT INFORMATION
  Report Type: 
  Country: None (occurrence: None)
  Receive Date: 20111101
  Receipt Date: 20111018
  Transmission Date: 20120403
  Serious: Yes (Hospitalization)
  Sender: FDA-Public Use
  Company Number: VE-ELI_LILLY_AND_COMPANY-VE201109007401

PATIENT
  Age: 31 Year
  Sex: Male

DRUGS (7)
  1. PANTOPRAZOLE [Concomitant]
     Indication: PROPHYLAXIS
  2. NATALIZUMAB [Concomitant]
     Dosage: UNK, OTHER EVERY 28 DAYS
  3. VITAMIN B COMPLEX CAP [Concomitant]
     Dosage: UNK, OTHER EVERY 5 DAYS
  4. FORTEO [Suspect]
     Indication: OSTEOPOROSIS
     Dosage: 0.08 ML, QD
     Dates: start: 20110901, end: 20110915
  5. NEURONTIN [Concomitant]
  6. FORTEO [Suspect]
     Dosage: 0.08 ML, QD
     Dates: start: 20110920
  7. CALCIUM CARBONATE [Concomitant]

REACTIONS (4)
  - OSTEOPOROSIS [None]
  - MYALGIA [None]
  - BONE PAIN [None]
  - INJECTION SITE HAEMORRHAGE [None]
